FAERS Safety Report 10197678 (Version 1)
Quarter: 2014Q2

REPORT INFORMATION
  Report Type: Spontaneous
  Country: None (occurrence: US)
  Receive Date: 20140527
  Receipt Date: 20140527
  Transmission Date: 20141212
  Serious: No
  Sender: FDA-Public Use
  Company Number: US-NOVEN-14US009375

PATIENT
  Age: 31 Year
  Sex: Female
  Weight: 81.63 kg

DRUGS (1)
  1. MINIVELLE [Suspect]
     Indication: HYSTERECTOMY
     Dosage: 0.1 MG/DAY, TWICE WEEKLY
     Route: 062
     Dates: start: 20130720, end: 20140327

REACTIONS (7)
  - Application site vesicles [Recovered/Resolved]
  - Application site pruritus [Recovered/Resolved]
  - Migraine [Recovered/Resolved]
  - Temporomandibular joint syndrome [Recovered/Resolved]
  - Application site erythema [Recovered/Resolved]
  - Wrong technique in drug usage process [Recovered/Resolved]
  - Off label use [Recovered/Resolved]
